FAERS Safety Report 22888715 (Version 2)
Quarter: 2023Q4

REPORT INFORMATION
  Report Type: Spontaneous
  Country: US (occurrence: US)
  Receive Date: 20230831
  Receipt Date: 20231027
  Transmission Date: 20240110
  Serious: Yes (Other)
  Sender: FDA-Public Use
  Company Number: US-PFIZER INC-PV202300145935

PATIENT
  Age: 31 Year
  Sex: Female

DRUGS (2)
  1. SOMAVERT [Suspect]
     Active Substance: PEGVISOMANT
     Indication: Acromegaly
     Dosage: 10 MG, DAILY
     Dates: start: 2023
  2. SOMAVERT [Suspect]
     Active Substance: PEGVISOMANT
     Dosage: 15 UNK

REACTIONS (4)
  - Weight increased [Unknown]
  - Hyperhidrosis [Unknown]
  - Headache [Unknown]
  - Hormone level abnormal [Unknown]
